FAERS Safety Report 23545108 (Version 1)
Quarter: 2024Q1

REPORT INFORMATION
  Report Type: Spontaneous
  Country: US (occurrence: US)
  Receive Date: 20240220
  Receipt Date: 20240220
  Transmission Date: 20240410
  Serious: Yes (Other)
  Sender: FDA-Public Use
  Company Number: US-PFIZER INC-202400042968

PATIENT
  Age: 8 Year
  Sex: Male

DRUGS (1)
  1. OXBRYTA [Suspect]
     Active Substance: VOXELOTOR
     Dosage: 300MG/3 TABLETS FOR ORAL SUSPENSION BY MOUTH ONCE DAILY
     Route: 048

REACTIONS (1)
  - Drug ineffective [Unknown]
